FAERS Safety Report 7700105-3 (Version None)
Quarter: 2011Q3

REPORT INFORMATION
  Report Type: 
  Country: None (occurrence: None)
  Receive Date: 20110822
  Receipt Date: 20110809
  Transmission Date: 20111222
  Serious: Yes (Other)
  Sender: FDA-Public Use
  Company Number: CN-JNJFOC-20110807989

PATIENT

DRUGS (1)
  1. NIZORAL [Suspect]
     Indication: FUNGAL INFECTION
     Route: 065

REACTIONS (1)
  - DIABETES MELLITUS [None]
